FAERS Safety Report 5306745-3 (Version None)
Quarter: 2007Q2

REPORT INFORMATION
  Report Type: 
  Country: None (occurrence: None)
  Receive Date: 20070418
  Receipt Date: 20070403
  Transmission Date: 20071010
  Serious: Yes (Hospitalization)
  Sender: FDA-Public Use
  Company Number: S07-CAN-00890-01

PATIENT
  Sex: Female

DRUGS (20)
  1. EBIXA (MEMANTINE) [Suspect]
     Dosage: 5 MG BID PO
     Route: 048
     Dates: end: 20061229
  2. EBIXA (MEMANTINE) [Suspect]
     Dosage: 5 MG QHS PO
     Route: 048
     Dates: start: 20070301, end: 20070307
  3. EBIXA (MEMANTINE) [Suspect]
     Dosage: 5 MG BID PO
     Route: 048
     Dates: start: 20070308
  4. ARICEPT [Concomitant]
  5. CITALOPRAM HYDROBROMIDE [Concomitant]
  6. QUETIAPINE FUMARATE [Concomitant]
  7. SINEMET [Concomitant]
  8. DIAMICROM MR [Concomitant]
  9. NITRO-DUR [Concomitant]
  10. SOTALOL HYDROCHLORIDE [Concomitant]
  11. AMLODIPINE [Concomitant]
  12. FOSINOPRIL SODIUM [Concomitant]
  13. DOMPERIDONE [Concomitant]
  14. PANTOPRAZOLE [Concomitant]
  15. ADVAIR DISKUS 100/50 [Concomitant]
  16. SALBUTAMOL [Concomitant]
  17. TYLENOL [Concomitant]
  18. MULTI-VITAMIN [Concomitant]
  19. METOPROLOL SUCCINATE [Concomitant]
  20. RENAGEL [Concomitant]

REACTIONS (7)
  - BLOOD PHOSPHORUS INCREASED [None]
  - BRONCHOSPASM [None]
  - DEHYDRATION [None]
  - GASTROENTERITIS [None]
  - HYPERKALAEMIA [None]
  - METABOLIC ACIDOSIS [None]
  - RENAL FAILURE ACUTE [None]
